FAERS Safety Report 8850364 (Version 3)
Quarter: 2013Q1

REPORT INFORMATION
  Report Type: Spontaneous
  Country: US (occurrence: US)
  Receive Date: 20121019
  Receipt Date: 20130110
  Transmission Date: 20140127
  Serious: No
  Sender: FDA-Public Use
  Company Number: US-VERTEX PHARMACEUTICAL INC.-2012-022855

PATIENT
  Age: 61 None
  Sex: Male
  Weight: 82 kg

DRUGS (8)
  1. INCIVEK [Suspect]
     Indication: HEPATITIS C
     Dosage: 750 MG, TID
     Route: 048
     Dates: start: 20120815, end: 20121107
  2. RIBAVIRIN [Suspect]
     Indication: HEPATITIS C
     Dosage: 600 MG, BID
     Route: 048
     Dates: start: 20120815
  3. PEGASYS [Suspect]
     Indication: HEPATITIS C
     Dosage: 180 ?G, QW
     Route: 058
     Dates: start: 20120815
  4. CHOLESTYRAMINE [Concomitant]
     Dosage: UNK, QD
  5. TESTIM [Concomitant]
     Dosage: 50 MG, UNK
  6. EFFEXOR [Concomitant]
     Dosage: UNK, QD
  7. XANAX [Concomitant]
     Dosage: UNK UNK, QD
  8. SYNTHROID [Concomitant]
     Dosage: UNK, QD

REACTIONS (9)
  - Drug dose omission [Recovered/Resolved]
  - Inappropriate schedule of drug administration [Unknown]
  - Blood count abnormal [Unknown]
  - Weight increased [Unknown]
  - Insomnia [Unknown]
  - Exercise lack of [Unknown]
  - Fatigue [Not Recovered/Not Resolved]
  - Rash generalised [Recovered/Resolved]
  - Pruritus generalised [Recovered/Resolved]
